FAERS Safety Report 9823340 (Version 1)
Quarter: 2014Q1

REPORT INFORMATION
  Report Type: Spontaneous
  Country: CA (occurrence: CA)
  Receive Date: 20140116
  Receipt Date: 20140116
  Transmission Date: 20141002
  Serious: Yes (Other)
  Sender: FDA-Public Use
  Company Number: CA-009507513-1401CAN006152

PATIENT
  Age: 79 Year
  Sex: Female

DRUGS (1)
  1. COSOPT [Suspect]
     Dosage: QD, (THERAOY DURATION UNKNOWN)
     Route: 047

REACTIONS (5)
  - Loss of consciousness [Recovered/Resolved]
  - Back injury [Recovered/Resolved]
  - Malaise [Recovering/Resolving]
  - Pyrexia [Recovering/Resolving]
  - Hyponatraemia [Recovering/Resolving]
